FAERS Safety Report 9619554 (Version 2)
Quarter: 2013Q4

REPORT INFORMATION
  Report Type: Spontaneous
  Country: JP (occurrence: JP)
  Receive Date: 20131014
  Receipt Date: 20131126
  Transmission Date: 20140711
  Serious: Yes (Hospitalization)
  Sender: FDA-Public Use
  Company Number: JP-BAYER-2013-122467

PATIENT
  Age: 72 Year
  Sex: Female
  Weight: 49 kg

DRUGS (13)
  1. NEXAVAR [Suspect]
     Indication: HEPATOCELLULAR CARCINOMA
     Dosage: 400 MG, QD
     Route: 048
     Dates: start: 20130903, end: 20130906
  2. URSO [Concomitant]
     Dosage: DAILY DOSE 600 MG
     Route: 048
  3. MUCOSTA [Concomitant]
     Dosage: DAILY DOSE 300 MG
     Route: 048
  4. TAURINE [Concomitant]
     Dosage: DAILY DOSE 3.06 G
     Route: 048
  5. MAGMITT [Concomitant]
     Dosage: DAILY DOSE 990 MG
     Route: 048
  6. LIVACT [Concomitant]
     Dosage: DAILY DOSE 12.45 G
     Route: 048
  7. AMARYL [Concomitant]
     Dosage: DAILY DOSE 4 MG
     Route: 048
  8. MIGLITOL [Concomitant]
     Dosage: DAILY DOSE 150 MG
     Route: 048
  9. VILDAGLIPTIN [Concomitant]
     Dosage: DAILY DOSE 100 MG
     Route: 048
  10. ADALAT CR [Concomitant]
     Dosage: 40 MG, OM
     Route: 048
  11. SOLANAX [Concomitant]
     Dosage: 0.4 MG, OM
     Route: 048
  12. NEXIUM [Concomitant]
     Dosage: 10 MG, QD
     Route: 048
  13. MYSLEE [Concomitant]
     Dosage: 5 MG, HS
     Route: 048

REACTIONS (5)
  - Hepatic encephalopathy [Recovered/Resolved]
  - Disorientation [Recovered/Resolved]
  - Tremor [Recovered/Resolved]
  - Hepatic function abnormal [Recovered/Resolved]
  - Hyperammonaemia [Recovered/Resolved]
